FAERS Safety Report 8298367-X (Version None)
Quarter: 2012Q2

REPORT INFORMATION
  Report Type: 
  Country: None (occurrence: None)
  Receive Date: 20120419
  Receipt Date: 20120410
  Transmission Date: 20120825
  Serious: Yes (Hospitalization)
  Sender: FDA-Public Use
  Company Number: BR-ASTRAZENECA-2012SE20530

PATIENT
  Age: 906 Month
  Sex: Female
  Weight: 90 kg

DRUGS (5)
  1. OMEPRAZOLE [Suspect]
     Route: 048
  2. DILTIAZEM [Concomitant]
     Route: 048
  3. AMLODIPINE [Concomitant]
     Route: 048
  4. ASPIRIN [Concomitant]
     Route: 048
  5. BRILINTA [Suspect]
     Indication: ISCHAEMIC HEART DISEASE PROPHYLAXIS
     Route: 048
     Dates: start: 20120202, end: 20120301

REACTIONS (3)
  - ANAEMIA [None]
  - HAEMORRHAGE [None]
  - DUODENAL POLYP [None]
